FAERS Safety Report 7789616-2 (Version None)
Quarter: 2011Q3

REPORT INFORMATION
  Report Type: 
  Country: None (occurrence: None)
  Receive Date: 20110930
  Receipt Date: 20110915
  Transmission Date: 20111222
  Serious: Yes (Other)
  Sender: FDA-Public Use
  Company Number: DE-WATSON-2011-14535

PATIENT

DRUGS (4)
  1. GEMCITABINE [Suspect]
     Indication: NEOPLASM
     Dosage: 1000 MG/M2, ON DAY 1, REPEAT ON DAY 8
     Route: 042
  2. OXALIPLATIN [Suspect]
     Indication: NEOPLASM
     Dosage: 85 MG/ M2/ 2 HR
     Route: 042
  3. GEMCITABINE [Suspect]
     Dosage: 1000 MG, ON DAY 8
     Route: 042
  4. IRINOTECAN HCL [Suspect]
     Indication: NEOPLASM
     Dosage: 175 MG/ M2 / 2HR

REACTIONS (7)
  - LEUKOPENIA [None]
  - NAUSEA [None]
  - DIARRHOEA [None]
  - THROMBOCYTOPENIA [None]
  - VOMITING [None]
  - ANAEMIA [None]
  - C-REACTIVE PROTEIN INCREASED [None]
